FAERS Safety Report 6886749-X (Version None)
Quarter: 2010Q3

REPORT INFORMATION
  Report Type: 
  Country: None (occurrence: None)
  Receive Date: 20100727
  Receipt Date: 20100723
  Transmission Date: 20110219
  Serious: Yes (Other)
  Sender: FDA-Public Use
  Company Number: NL-ROCHE-714410

PATIENT

DRUGS (1)
  1. ROACTEMRA [Suspect]
     Indication: RHEUMATOID ARTHRITIS
     Dosage: THERAPY TEMPORARILY DISCONTINUED.
     Route: 042

REACTIONS (2)
  - C-REACTIVE PROTEIN DECREASED [None]
  - DIVERTICULITIS [None]
